APPROVED DRUG PRODUCT: METRONIDAZOLE
Active Ingredient: METRONIDAZOLE
Strength: 1%
Dosage Form/Route: GEL;TOPICAL
Application: A216692 | Product #001 | TE Code: AB
Applicant: COSETTE PHARMACEUTICALS INC
Approved: Jan 23, 2023 | RLD: No | RS: No | Type: RX